FAERS Safety Report 17860347 (Version 1)
Quarter: 2020Q2

REPORT INFORMATION
  Report Type: Spontaneous
  Country: US (occurrence: US)
  Receive Date: 20200604
  Receipt Date: 20200604
  Transmission Date: 20200714
  Serious: Yes (Other)
  Sender: FDA-Public Use
  Company Number: US-PFIZER INC-2020217886

PATIENT
  Age: 73 Year
  Sex: Female
  Weight: 67.59 kg

DRUGS (3)
  1. HYDROXYZINE HCL [Concomitant]
     Active Substance: HYDROXYZINE HYDROCHLORIDE
     Indication: ANXIETY
     Dosage: 25 MG, AS NEEDED (AS NEEDED UP TO THREE TIMES PER DAY)
     Route: 048
     Dates: start: 201912
  2. IBRANCE [Suspect]
     Active Substance: PALBOCICLIB
     Dosage: 100 MG, CYCLIC (ONCE EACH DAY FOR 21 DAYS, OFF 7 DAYS)
     Route: 048
     Dates: start: 20200527
  3. IBRANCE [Suspect]
     Active Substance: PALBOCICLIB
     Indication: BREAST CANCER METASTATIC
     Dosage: 110 MG

REACTIONS (4)
  - Injury [Not Recovered/Not Resolved]
  - Near death experience [Not Recovered/Not Resolved]
  - Post-traumatic stress disorder [Unknown]
  - Body height decreased [Unknown]

NARRATIVE: CASE EVENT DATE: 201906
